FAERS Safety Report 4555921-6 (Version None)
Quarter: 2005Q1

REPORT INFORMATION
  Report Type: 
  Country: None (occurrence: None)
  Receive Date: 20050119
  Receipt Date: 20041019
  Transmission Date: 20050727
  Serious: Yes (Death)
  Sender: FDA-Public Use
  Company Number: US-MERCK-0410USA02982

PATIENT
  Age: 49 Year
  Sex: Male

DRUGS (9)
  1. VIOXX [Suspect]
     Indication: ARTHRALGIA
     Route: 048
     Dates: start: 20040101
  2. VIOXX [Suspect]
     Indication: OSTEOARTHRITIS
     Route: 048
     Dates: start: 20040101
  3. LANOXIN [Concomitant]
     Route: 065
  4. WELLBUTRIN [Concomitant]
     Route: 065
  5. COREG [Concomitant]
     Route: 065
  6. ADVAIR DISKUS 100/50 [Concomitant]
     Route: 065
  7. COMBIVENT [Concomitant]
     Route: 065
  8. FUROSEMIDE [Concomitant]
     Route: 065
  9. TARKA [Concomitant]
     Route: 065

REACTIONS (8)
  - CHRONIC OBSTRUCTIVE PULMONARY DISEASE [None]
  - EFFUSION [None]
  - ELECTROMECHANICAL DISSOCIATION [None]
  - EMPHYSEMA [None]
  - GENERAL PHYSICAL HEALTH DETERIORATION [None]
  - PULMONARY OEDEMA [None]
  - RESPIRATORY FAILURE [None]
  - TOBACCO ABUSE [None]
